FAERS Safety Report 9949256 (Version 1)
Quarter: 2014Q1

REPORT INFORMATION
  Report Type: Spontaneous
  Country: IT (occurrence: IT)
  Receive Date: 20140304
  Receipt Date: 20140304
  Transmission Date: 20141002
  Serious: Yes (Other)
  Sender: FDA-Public Use
  Company Number: IT-DRREDDYS-GER/ITL/14/0038440

PATIENT
  Age: 29 Year
  Sex: Female

DRUGS (2)
  1. RANITIDINE [Suspect]
     Indication: PRODUCT USED FOR UNKNOWN INDICATION
     Route: 048
     Dates: start: 20140202, end: 20140202
  2. PARACETAMOL [Suspect]
     Indication: HEADACHE
     Route: 048
     Dates: start: 20140202, end: 20140202

REACTIONS (1)
  - Urticaria [Recovering/Resolving]
